FAERS Safety Report 7738357-6 (Version None)
Quarter: 2011Q3

REPORT INFORMATION
  Report Type: 
  Country: None (occurrence: None)
  Receive Date: 20110908
  Receipt Date: 20110905
  Transmission Date: 20111222
  Serious: Yes (Death)
  Sender: FDA-Public Use
  Company Number: GB-PFIZER INC-2011153722

PATIENT
  Age: 84 Year
  Sex: Male

DRUGS (2)
  1. TOVIAZ [Suspect]
     Indication: URINARY INCONTINENCE
     Dosage: 4 MG, 1X/DAY
     Route: 048
     Dates: start: 20110627
  2. TOVIAZ [Suspect]
     Indication: MICTURITION URGENCY

REACTIONS (3)
  - DRUG EFFECT DECREASED [None]
  - OESOPHAGEAL CARCINOMA [None]
  - URINARY INCONTINENCE [None]
